FAERS Safety Report 15291278 (Version 1)
Quarter: 2018Q3

REPORT INFORMATION
  Report Type: Spontaneous
  Country: US (occurrence: US)
  Receive Date: 20180803
  Receipt Date: 20180803
  Transmission Date: 20181010
  Serious: Yes (Other)
  Sender: FDA-Public Use
  Company Number: None

PATIENT
  Age: 17 Year
  Sex: Male

DRUGS (1)
  1. BCG [Suspect]
     Active Substance: BCG VACCINE

REACTIONS (4)
  - Syncope [None]
  - Paraesthesia [None]
  - Dizziness [None]
  - Dyskinesia [None]

NARRATIVE: CASE EVENT DATE: 20180529
